FAERS Safety Report 4715048-7 (Version None)
Quarter: 2005Q2

REPORT INFORMATION
  Report Type: 
  Country: None (occurrence: None)
  Receive Date: 20050630
  Receipt Date: 20050518
  Transmission Date: 20051028
  Serious: Yes (Hospitalization)
  Sender: FDA-Public Use
  Company Number: 214576

PATIENT
  Age: 64 Year
  Sex: Male
  Weight: 69.4 kg

DRUGS (3)
  1. AVASTIN [Suspect]
     Indication: COLORECTAL CANCER METASTATIC
     Dosage: 400 MG, QW2, INTRAVENOUS
     Route: 042
     Dates: start: 20040615, end: 20050418
  2. 5FU (FLUOROURACIL) [Concomitant]
  3. LEUCOVORIN CALCIUM [Concomitant]

REACTIONS (1)
  - PULMONARY EMBOLISM [None]
